FAERS Safety Report 4887293-1 (Version None)
Quarter: 2005Q4

REPORT INFORMATION
  Report Type: 
  Country: None (occurrence: None)
  Receive Date: 20051220
  Receipt Date: 20050323
  Transmission Date: 20060501
  Serious: Yes (Other)
  Sender: FDA-Public Use
  Company Number: HQWYE633204APR05

PATIENT
  Sex: Female
  Weight: 74.91 kg

DRUGS (5)
  1. EFFEXOR XR [Suspect]
     Indication: FIBROMYALGIA
     Dosage: 75 MG 1X PER 1 DAY, ORAL
     Route: 048
     Dates: start: 19980101
  2. SOMA [Concomitant]
  3. XANAX [Concomitant]
  4. PRILOSEC [Concomitant]
  5. MELATONIN (MELATONIN) [Concomitant]

REACTIONS (5)
  - CRYING [None]
  - DIZZINESS [None]
  - DRUG WITHDRAWAL SYNDROME [None]
  - HEADACHE [None]
  - PARAESTHESIA [None]
